FAERS Safety Report 20612488 (Version 1)
Quarter: 2022Q1

REPORT INFORMATION
  Report Type: Spontaneous
  Country: IT (occurrence: IT)
  Receive Date: 20220318
  Receipt Date: 20220318
  Transmission Date: 20220424
  Serious: Yes (Other)
  Sender: FDA-Public Use
  Company Number: IT-AMGEN-ITASP2022044425

PATIENT
  Age: 50 Year
  Sex: Female

DRUGS (3)
  1. ADALIMUMAB [Suspect]
     Active Substance: ADALIMUMAB
     Indication: Colitis ulcerative
     Dosage: UNK
     Route: 065
  2. VEDOLIZUMAB [Concomitant]
     Active Substance: VEDOLIZUMAB
     Indication: Colitis ulcerative
     Route: 065
  3. INFLIXIMAB [Concomitant]
     Active Substance: INFLIXIMAB
     Indication: Colitis ulcerative
     Route: 065

REACTIONS (2)
  - Colitis ulcerative [Recovering/Resolving]
  - Therapy non-responder [Unknown]
